FAERS Safety Report 4508977-0 (Version None)
Quarter: 2004Q4

REPORT INFORMATION
  Report Type: 
  Country: None (occurrence: None)
  Receive Date: 20041122
  Receipt Date: 20041122
  Transmission Date: 20050328
  Serious: Yes (Hospitalization)
  Sender: FDA-Public Use
  Company Number: None

PATIENT
  Age: 59 Year
  Sex: Female

DRUGS (10)
  1. AZITHROMYCIN [Suspect]
     Indication: CELLULITIS
     Dosage: UNKNOWN
     Route: 065
     Dates: start: 20040507, end: 20040509
  2. LOTREL [Concomitant]
  3. FUROSEMIDE [Concomitant]
  4. POTASSIUM SUPPLEMENT [Concomitant]
  5. SPIROLACTONE [Concomitant]
  6. ISOSORBIDE DINITRATE [Concomitant]
  7. DOXAZOSIN [Concomitant]
  8. ATORVASTATIN CALCIUM [Concomitant]
  9. VALDECOXIB [Concomitant]
  10. TYLENOL W/ CODEINE NO. 3 [Concomitant]

REACTIONS (3)
  - DERMATITIS [None]
  - RASH MACULO-PAPULAR [None]
  - SECRETION DISCHARGE [None]
